FAERS Safety Report 17871082 (Version 1)
Quarter: 2020Q2

REPORT INFORMATION
  Report Type: Spontaneous
  Country: US (occurrence: US)
  Receive Date: 20200608
  Receipt Date: 20200608
  Transmission Date: 20200714
  Serious: Yes (Other)
  Sender: FDA-Public Use
  Company Number: None

PATIENT
  Sex: Male
  Weight: 72.9 kg

DRUGS (2)
  1. ELIQUIS [Concomitant]
     Active Substance: APIXABAN
  2. AMIODARONE [Suspect]
     Active Substance: AMIODARONE

REACTIONS (5)
  - Muscular weakness [None]
  - Dyspnoea [None]
  - Dizziness [None]
  - Dysphagia [None]
  - Visual impairment [None]
